FAERS Safety Report 6255725-2 (Version None)
Quarter: 2009Q3

REPORT INFORMATION
  Report Type: 
  Country: None (occurrence: None)
  Receive Date: 20090701
  Receipt Date: 20090624
  Transmission Date: 20100115
  Serious: Yes (Other)
  Sender: FDA-Public Use
  Company Number: 2009SP012169

PATIENT
  Age: 4 Year
  Sex: Female
  Weight: 17 kg

DRUGS (3)
  1. CLARITIN [Suspect]
     Indication: DERMATITIS ATOPIC
     Dosage: 0.5 GM; PO
     Route: 048
     Dates: start: 20090518, end: 20090529
  2. CELESTAMINE TAB [Suspect]
     Indication: ALOPECIA
     Dosage: 10 ML; PO; 15 ML; PO
     Route: 048
     Dates: start: 20090605, end: 20090607
  3. CELESTAMINE TAB [Suspect]
     Indication: ALOPECIA
     Dosage: 10 ML; PO; 15 ML; PO
     Route: 048
     Dates: start: 20090608, end: 20090610

REACTIONS (3)
  - ALOPECIA [None]
  - ALOPECIA AREATA [None]
  - DRUG INEFFECTIVE [None]
